FAERS Safety Report 8951866 (Version 3)
Quarter: 2013Q4

REPORT INFORMATION
  Report Type: Spontaneous
  Country: JP (occurrence: JP)
  Receive Date: 20121204
  Receipt Date: 20131112
  Transmission Date: 20140711
  Serious: Yes (Hospitalization)
  Sender: FDA-Public Use
  Company Number: JP-ROCHE-1087284

PATIENT
  Age: 3 Year
  Sex: Male
  Weight: 11 kg

DRUGS (9)
  1. ACTEMRA [Suspect]
     Indication: JUVENILE IDIOPATHIC ARTHRITIS
     Route: 041
     Dates: start: 20120621, end: 2012
  2. ACTEMRA [Suspect]
     Indication: JUVENILE IDIOPATHIC ARTHRITIS
     Route: 041
     Dates: start: 2012
  3. ACTEMRA [Suspect]
     Indication: JUVENILE IDIOPATHIC ARTHRITIS
     Route: 041
     Dates: start: 20121114, end: 2013
  4. ACTEMRA [Suspect]
     Indication: JUVENILE IDIOPATHIC ARTHRITIS
     Route: 041
     Dates: start: 2013
  5. PREDNISOLONE [Concomitant]
     Indication: JUVENILE IDIOPATHIC ARTHRITIS
     Route: 048
     Dates: end: 2012
  6. PREDNISOLONE [Concomitant]
     Indication: JUVENILE IDIOPATHIC ARTHRITIS
     Route: 048
     Dates: start: 2012, end: 20121115
  7. PREDNISOLONE [Concomitant]
     Indication: JUVENILE IDIOPATHIC ARTHRITIS
     Route: 048
     Dates: start: 2012
  8. MARZULENE-S [Concomitant]
     Indication: PROPHYLAXIS
     Route: 048
     Dates: start: 20111026
  9. BAKTAR [Concomitant]
     Indication: PROPHYLAXIS
     Dosage: DOSAGE DURING A DAY: 0.5G TWICE
     Route: 048
     Dates: start: 20111109

REACTIONS (4)
  - Juvenile idiopathic arthritis [Recovering/Resolving]
  - Pneumonia [Unknown]
  - Histiocytosis haematophagic [Recovering/Resolving]
  - C-reactive protein increased [Recovered/Resolved]
